FAERS Safety Report 26037539 (Version 1)
Quarter: 2025Q4

REPORT INFORMATION
  Report Type: Report from Study
  Country: US (occurrence: US)
  Receive Date: 20251112
  Receipt Date: 20251112
  Transmission Date: 20260119
  Serious: Yes (Hospitalization, Other)
  Sender: ABBVIE
  Company Number: US-ABBVIE-6538593

PATIENT
  Age: 64 Year
  Sex: Female

DRUGS (1)
  1. RINVOQ [Suspect]
     Active Substance: UPADACITINIB
     Indication: Rheumatoid arthritis
     Route: 048
     Dates: start: 20220717

REACTIONS (4)
  - Sepsis [Unknown]
  - Influenza [Unknown]
  - Pneumonia [Unknown]
  - COVID-19 [Unknown]

NARRATIVE: CASE EVENT DATE: 20250101
